FAERS Safety Report 9669387 (Version 2)
Quarter: 2013Q4

REPORT INFORMATION
  Report Type: Spontaneous
  Country: DK (occurrence: DK)
  Receive Date: 20131105
  Receipt Date: 20131113
  Transmission Date: 20140711
  Serious: Yes (Other)
  Sender: FDA-Public Use
  Company Number: DK-ASTRAZENECA-2013SE79326

PATIENT
  Age: 71 Year
  Sex: Female

DRUGS (15)
  1. BRILIQUE [Suspect]
     Indication: ANTICOAGULANT THERAPY
     Route: 048
     Dates: start: 20130211, end: 20130805
  2. IBUMETIN [Suspect]
     Route: 065
  3. NORITREN [Suspect]
     Route: 065
  4. IMOZOP [Suspect]
     Route: 065
  5. FURIX [Concomitant]
  6. METOPROLOLSUCCINAT [Concomitant]
  7. ISODUR [Concomitant]
  8. PANTOPRAZOLE [Concomitant]
  9. KALEORID [Concomitant]
  10. OXYCONTIN [Concomitant]
  11. ACICLODAN [Concomitant]
     Indication: HERPES ZOSTER
  12. SEEBRI BREEZHALER [Concomitant]
  13. VAGIFEM [Concomitant]
  14. AMLODIPIN [Concomitant]
  15. CLOPIDOGREL ^ACTAVIS^ [Concomitant]
     Indication: ANTICOAGULANT THERAPY
     Dates: start: 20130805

REACTIONS (1)
  - Renal impairment [Recovered/Resolved]
